FAERS Safety Report 5953683-9 (Version None)
Quarter: 2008Q4

REPORT INFORMATION
  Report Type: 
  Country: None (occurrence: None)
  Receive Date: 20081031
  Receipt Date: 20080612
  Transmission Date: 20090506
  Serious: No
  Sender: FDA-Public Use
  Company Number: 2008PV035751

PATIENT
  Age: 51 Year
  Sex: Female

DRUGS (3)
  1. SYMLIN [Suspect]
     Indication: TYPE 2 DIABETES MELLITUS
     Dosage: 180 MGG; QD; SC, 120 MCG; QD; SC, 60 MCG; QD; SC
     Route: 058
     Dates: start: 20080612, end: 20080612
  2. SYMLIN [Suspect]
     Indication: TYPE 2 DIABETES MELLITUS
     Dosage: 180 MGG; QD; SC, 120 MCG; QD; SC, 60 MCG; QD; SC
     Route: 058
     Dates: end: 20080612
  3. NOVOLOG [Concomitant]

REACTIONS (2)
  - BLOOD GLUCOSE INCREASED [None]
  - WRONG DRUG ADMINISTERED [None]
